FAERS Safety Report 9526551 (Version 2)
Quarter: 2013Q3

REPORT INFORMATION
  Report Type: Spontaneous
  Country: US (occurrence: US)
  Receive Date: 20130916
  Receipt Date: 20130927
  Transmission Date: 20140515
  Serious: No
  Sender: FDA-Public Use
  Company Number: US-PFIZER INC-2013264268

PATIENT
  Age: 62 Year
  Sex: Female
  Weight: 81.63 kg

DRUGS (2)
  1. XELJANZ [Suspect]
     Indication: RHEUMATOID ARTHRITIS
     Dosage: UNK, 2X/DAY
     Route: 048
     Dates: start: 201308, end: 201309
  2. PREDNISONE [Concomitant]
     Dosage: UNK

REACTIONS (1)
  - Blood pressure increased [Recovering/Resolving]
